FAERS Safety Report 11550423 (Version 2)
Quarter: 2015Q4

REPORT INFORMATION
  Report Type: Report from Study
  Country: US (occurrence: US)
  Receive Date: 20150924
  Receipt Date: 20151019
  Transmission Date: 20160304
  Serious: No
  Sender: FDA-Public Use
  Company Number: US-AMGEN-USASP2015096830

PATIENT
  Age: 33 Year
  Sex: Female

DRUGS (1)
  1. ENBREL [Suspect]
     Active Substance: ETANERCEPT
     Indication: ANKYLOSING SPONDYLITIS
     Dosage: 50 MG, QWK
     Route: 065
     Dates: start: 20150910

REACTIONS (9)
  - Pollakiuria [Unknown]
  - Musculoskeletal stiffness [Unknown]
  - Melanocytic naevus [Unknown]
  - Pain of skin [Unknown]
  - Feeling abnormal [Unknown]
  - Hypersensitivity [Unknown]
  - Epistaxis [Recovered/Resolved]
  - Pain [Unknown]
  - Paraesthesia [Unknown]

NARRATIVE: CASE EVENT DATE: 2015
